FAERS Safety Report 9404328 (Version 2)
Quarter: 2013Q3

REPORT INFORMATION
  Report Type: Spontaneous
  Country: US (occurrence: US)
  Receive Date: 20130717
  Receipt Date: 20130925
  Transmission Date: 20140515
  Serious: Yes (Hospitalization, Other)
  Sender: FDA-Public Use
  Company Number: US-BAYER-2013-085290

PATIENT
  Age: 28 Year
  Sex: Female

DRUGS (1)
  1. MIRENA [Suspect]
     Indication: CONTRACEPTION
     Dosage: 20 MCG/24HR, CONT
     Route: 015
     Dates: start: 20120405, end: 20130619

REACTIONS (3)
  - Pelvic inflammatory disease [Recovered/Resolved]
  - Pelvic inflammatory disease [Recovered/Resolved]
  - Enterobacter test positive [Recovered/Resolved]
